FAERS Safety Report 5864097-4 (Version None)
Quarter: 2008Q3

REPORT INFORMATION
  Report Type: 
  Country: None (occurrence: None)
  Receive Date: 20080829
  Receipt Date: 20080820
  Transmission Date: 20090109
  Serious: Yes (Hospitalization)
  Sender: FDA-Public Use
  Company Number: US-KINGPHARMUSA00001-K200800989

PATIENT

DRUGS (6)
  1. TAPAZOLE [Suspect]
     Dosage: UNK, QD
     Route: 048
     Dates: start: 19920101
  2. TAPAZOLE [Suspect]
     Dosage: 5 MCG AM AND 2.5 PM, QD
  3. LANOXIN [Concomitant]
     Dosage: .25 MG, QD
     Route: 048
     Dates: start: 20071201, end: 20071201
  4. INDERAL                            /00030001/ [Concomitant]
     Dosage: 10 MG, QD
     Route: 048
     Dates: start: 20071201, end: 20071201
  5. CARDIZEM [Concomitant]
     Indication: ATRIAL FIBRILLATION
     Dosage: 60 MG, QD
     Route: 048
     Dates: start: 20080701
  6. LOPRESSOR [Concomitant]
     Indication: ATRIAL FIBRILLATION
     Dosage: 12.5 MG, QD
     Route: 048
     Dates: start: 20080701

REACTIONS (5)
  - ARRHYTHMIA [None]
  - ATRIAL FIBRILLATION [None]
  - FEELING ABNORMAL [None]
  - HYPOTHYROIDISM [None]
  - SYNCOPE [None]
